FAERS Safety Report 12158566 (Version 1)
Quarter: 2016Q1

REPORT INFORMATION
  Report Type: Spontaneous
  Country: US (occurrence: None)
  Receive Date: 20160307
  Receipt Date: 20160307
  Transmission Date: 20160526
  Serious: No
  Sender: FDA-Public Use
  Company Number: None

PATIENT
  Age: 58 Year
  Sex: Female

DRUGS (2)
  1. NEUPOGEN [Suspect]
     Active Substance: FILGRASTIM
     Indication: NEUTROPENIA
     Dosage: 300MCG DAILY FOR 3 DAYS, WEEKLY FOR 3 WEEKS SUBCUTANEOUS
     Route: 058
     Dates: start: 20160115
  2. NEUPOGEN [Suspect]
     Active Substance: FILGRASTIM
     Indication: NEOPLASM MALIGNANT
     Dosage: 300MCG DAILY FOR 3 DAYS, WEEKLY FOR 3 WEEKS SUBCUTANEOUS
     Route: 058
     Dates: start: 20160115

REACTIONS (3)
  - Joint swelling [None]
  - Arthralgia [None]
  - Bone pain [None]

NARRATIVE: CASE EVENT DATE: 20160223
